FAERS Safety Report 4577205-2 (Version None)
Quarter: 2005Q1

REPORT INFORMATION
  Report Type: 
  Country: None (occurrence: None)
  Receive Date: 20050208
  Receipt Date: 20050127
  Transmission Date: 20050727
  Serious: Yes (Death, Hospitalization)
  Sender: FDA-Public Use
  Company Number: P2005000002

PATIENT
  Age: 85 Year
  Sex: Male

DRUGS (12)
  1. PLENAXIS [Suspect]
     Indication: PROSTATE CANCER
     Dosage: 100 MG, SINGLE, INTRAMUSCULAR
     Route: 030
     Dates: start: 20040608, end: 20040608
  2. PLENAXIS [Suspect]
     Indication: PROSTATE CANCER
     Dosage: 100 MG, SINGLE, INTRAMUSCULAR
     Route: 030
     Dates: start: 20040622, end: 20040622
  3. PLENAXIS [Suspect]
     Indication: PROSTATE CANCER
     Dosage: 100 MG, SINGLE, INTRAMUSCULAR
     Route: 030
     Dates: start: 20040707, end: 20040707
  4. PAXIL [Concomitant]
  5. ARICEPT [Concomitant]
  6. ACIPHEX [Concomitant]
  7. GUTRON [Concomitant]
  8. DITROPAN XL (OXYBUTYNIH HYDROCHLORIDE) [Concomitant]
  9. PLENDIL /SWE/ (FELODIPINE) [Concomitant]
  10. PROCRIT (ERYTHROPOIETIN) [Concomitant]
  11. NILANDRON [Concomitant]
  12. VIADUR [Concomitant]

REACTIONS (6)
  - CALCULUS URETERIC [None]
  - CATHETER RELATED COMPLICATION [None]
  - EXTRAVASATION [None]
  - HAEMATURIA [None]
  - METASTASES TO BLADDER [None]
  - PROSTATE CANCER [None]
